FAERS Safety Report 22075890 (Version 1)
Quarter: 2023Q1

REPORT INFORMATION
  Report Type: Spontaneous
  Country: US (occurrence: US)
  Receive Date: 20230308
  Receipt Date: 20230308
  Transmission Date: 20230417
  Serious: No
  Sender: FDA-Public Use
  Company Number: US-INCYTE CORPORATION-2023IN002089

PATIENT

DRUGS (1)
  1. JAKAFI [Suspect]
     Active Substance: RUXOLITINIB
     Indication: Essential thrombocythaemia
     Dosage: 20MG IN THE MORNING, 10MG IN THE EVENING
     Route: 048
     Dates: start: 20211129

REACTIONS (5)
  - COVID-19 [Unknown]
  - Blood pressure abnormal [Unknown]
  - Poor quality sleep [Unknown]
  - Anxiety [Unknown]
  - Off label use [Unknown]

NARRATIVE: CASE EVENT DATE: 20211129
